FAERS Safety Report 11686927 (Version 1)
Quarter: 2015Q4

REPORT INFORMATION
  Report Type: Report from Study
  Country: US (occurrence: None)
  Receive Date: 20151030
  Receipt Date: 20151030
  Transmission Date: 20160304
  Serious: Yes (Life-Threatening, Hospitalization, Other)
  Sender: FDA-Public Use
  Company Number: US-MDT-ADR-2015-02053

PATIENT
  Age: 29 Year
  Sex: Female

DRUGS (2)
  1. COMPOUNDED BACLOFEN  INTRATHECAL 2000 MCG/ML [Suspect]
     Active Substance: BACLOFEN
     Indication: PAIN
     Dosage: 53.4 MCG/HR
  2. DILAUDID [Suspect]
     Active Substance: HYDROMORPHONE HYDROCHLORIDE
     Indication: PAIN
     Dosage: 0.0801 MG/HR

REACTIONS (3)
  - Unresponsive to stimuli [None]
  - Overdose [None]
  - Condition aggravated [None]
